FAERS Safety Report 8279234-4 (Version None)
Quarter: 2012Q2

REPORT INFORMATION
  Report Type: 
  Country: None (occurrence: None)
  Receive Date: 20120412
  Receipt Date: 20110929
  Transmission Date: 20120825
  Serious: No
  Sender: FDA-Public Use
  Company Number: US-ASTRAZENECA-2011SE58743

PATIENT
  Age: 42 Year
  Sex: Male
  Weight: 61.2 kg

DRUGS (4)
  1. NEXIUM [Suspect]
     Indication: ABDOMINAL DISTENSION
     Route: 048
     Dates: start: 20110928
  2. NEXIUM [Suspect]
     Indication: ABDOMINAL PAIN UPPER
     Route: 048
     Dates: start: 20110928
  3. NEXIUM [Suspect]
     Indication: FLATULENCE
     Route: 048
     Dates: start: 20110928
  4. PEDIATRIC IRON TABLET [Concomitant]
     Indication: ANAEMIA

REACTIONS (4)
  - OFF LABEL USE [None]
  - SOMNOLENCE [None]
  - FATIGUE [None]
  - DIZZINESS [None]
